FAERS Safety Report 14549475 (Version 1)
Quarter: 2018Q1

REPORT INFORMATION
  Report Type: Spontaneous
  Country: GB (occurrence: GB)
  Receive Date: 20180219
  Receipt Date: 20180219
  Transmission Date: 20180509
  Serious: Yes (Other)
  Sender: FDA-Public Use
  Company Number: GB-CONCORDIA PHARMACEUTICALS INC.-E2B_00009941

PATIENT
  Age: 52 Year
  Sex: Female

DRUGS (10)
  1. DIGOXIN. [Suspect]
     Active Substance: DIGOXIN
     Dates: start: 20180124
  2. CLARITHROMYCIN. [Concomitant]
     Active Substance: CLARITHROMYCIN
     Dosage: FOR 7 DAYS, TO TREA...
     Dates: start: 20180117, end: 20180124
  3. LYMECYCLINE [Concomitant]
     Active Substance: LYMECYCLINE
     Dates: start: 20110310
  4. BISOPROLOL [Concomitant]
     Active Substance: BISOPROLOL
     Dosage: EACH MORNING
     Dates: start: 20180124
  5. TRIMETHOPRIM. [Concomitant]
     Active Substance: TRIMETHOPRIM
     Dates: start: 20150722
  6. DIPROBASE [Concomitant]
     Active Substance: CHLOROCRESOL
     Dosage: ; AS REQUIRED
     Dates: start: 20120720
  7. BACLOFEN. [Concomitant]
     Active Substance: BACLOFEN
     Dosage: ONE THREE TIMES DAILY AND HALF AT NIGHT.
     Dates: start: 20110310
  8. FLUCLOXACILLIN [Concomitant]
     Active Substance: FLUCLOXACILLIN
     Dates: start: 20180110, end: 20180119
  9. SUMATRIPTAN. [Concomitant]
     Active Substance: SUMATRIPTAN
     Dosage: AS DIRECTED.
     Dates: start: 20141209
  10. EPILIM [Concomitant]
     Active Substance: VALPROATE SODIUM
     Dates: start: 20130613

REACTIONS (1)
  - Bradycardia [Recovered/Resolved]

NARRATIVE: CASE EVENT DATE: 20180124
